FAERS Safety Report 12285712 (Version 3)
Quarter: 2016Q3

REPORT INFORMATION
  Report Type: Spontaneous
  Country: US (occurrence: US)
  Receive Date: 20160420
  Receipt Date: 20160728
  Transmission Date: 20161109
  Serious: Yes (Death)
  Sender: FDA-Public Use
  Company Number: US-CELGENEUS-USA-2016042980

PATIENT
  Age: 79 Year
  Sex: Male

DRUGS (1)
  1. REVLIMID [Suspect]
     Active Substance: LENALIDOMIDE
     Indication: NON-HODGKIN^S LYMPHOMA
     Dosage: 20 MILLIGRAM
     Route: 048
     Dates: start: 20160302, end: 20160406

REACTIONS (1)
  - Non-Hodgkin^s lymphoma [Fatal]

NARRATIVE: CASE EVENT DATE: 20160406
